FAERS Safety Report 7861264-5 (Version None)
Quarter: 2011Q4

REPORT INFORMATION
  Report Type: 
  Country: None (occurrence: None)
  Receive Date: 20111027
  Receipt Date: 20111017
  Transmission Date: 20120403
  Serious: Yes (Other)
  Sender: FDA-Public Use
  Company Number: US-JNJFOC-20111008315

PATIENT
  Age: 17 Year
  Sex: Female

DRUGS (3)
  1. BENADRYL [Suspect]
     Indication: HYPERSENSITIVITY
     Dosage: 2 KAPGELS TWICE DAILY ON 5 SEPARATE DAYS
     Route: 048
     Dates: start: 20110922, end: 20111013
  2. STEROIDS NOS [Concomitant]
     Indication: HYPERSENSITIVITY
     Route: 065
     Dates: start: 20110922
  3. BENADRYL [Suspect]
     Route: 048

REACTIONS (5)
  - WEIGHT DECREASED [None]
  - TREMOR [None]
  - OFF LABEL USE [None]
  - VOMITING [None]
  - NAUSEA [None]
